FAERS Safety Report 8875007 (Version 1)
Quarter: 2012Q4

REPORT INFORMATION
  Report Type: 
  Country: ES (occurrence: ES)
  Receive Date: 20121023
  Receipt Date: 20121023
  Transmission Date: 20130627
  Serious: Yes (Hospitalization)
  Sender: FDA-Public Use
  Company Number: ES-PFIZER INC-2012259134

PATIENT
  Age: 35 Year
  Sex: Male
  Weight: 78.4 kg

DRUGS (7)
  1. GENOTROPIN [Suspect]
     Indication: HYPOPITUITARISM
     Dosage: 0.2 mg, 1x/day, 7inj/wk
     Route: 058
     Dates: start: 20040121
  2. DESMOPRESSIN [Concomitant]
     Indication: BLOOD ANTIDIURETIC HORMONE DECREASED
     Dosage: UNK
     Dates: start: 19770701
  3. LEVOTHYROXINE [Concomitant]
     Indication: BLOOD THYROID STIMULATING HORMONE DECREASED
     Dosage: UNK
     Dates: start: 19790903
  4. LEVOTHYROXINE [Concomitant]
     Indication: PRIMARY HYPOTHYROIDISM
  5. SEGURIL [Concomitant]
     Indication: PERICARDITIS
     Dosage: UNK
     Dates: start: 20061210
  6. OMEPRAZOL ^ACYFABRIK^ [Concomitant]
     Indication: PERICARDITIS
     Dosage: UNK
     Dates: start: 20061210
  7. DACORTIN [Concomitant]
     Indication: PERICARDITIS
     Dosage: UNK
     Dates: start: 20070322

REACTIONS (1)
  - Pericarditis [Unknown]
